FAERS Safety Report 9476091 (Version 1)
Quarter: 2013Q3

REPORT INFORMATION
  Report Type: Spontaneous
  Country: GB (occurrence: None)
  Receive Date: 20130821
  Receipt Date: 20130821
  Transmission Date: 20140515
  Serious: Yes (Other)
  Sender: FDA-Public Use
  Company Number: SYM-2013-08972

PATIENT
  Age: 85 Year
  Sex: Female

DRUGS (1)
  1. TIMOPTOL [Suspect]
     Indication: GLAUCOMA
     Dosage: ONCE IN THE MORNING, OPTHALMIC

REACTIONS (2)
  - Cerebrovascular accident [None]
  - Drug dose omission [None]
